FAERS Safety Report 4401073-2 (Version None)
Quarter: 2004Q3

REPORT INFORMATION
  Report Type: 
  Country: None (occurrence: None)
  Receive Date: 20040907
  Receipt Date: 20031016
  Transmission Date: 20050211
  Serious: No
  Sender: FDA-Public Use
  Company Number: US-BRISTOL-MYERS SQUIBB COMPANY-12412458

PATIENT
  Age: 77 Year
  Sex: Male
  Weight: 91 kg

DRUGS (5)
  1. COUMADIN [Suspect]
     Indication: ATRIAL FIBRILLATION
     Dosage: AT EVENT DOSE WAS 2.5 MG 2 DAY PER WK, AND 5 MG THE OTHER 5 DAYS
     Route: 048
     Dates: start: 19960101
  2. PRAVACHOL [Concomitant]
  3. HYZAAR [Concomitant]
  4. PLENDIL [Concomitant]
  5. ISOSORBIDE [Concomitant]

REACTIONS (1)
  - INTERNATIONAL NORMALISED RATIO DECREASED [None]
